FAERS Safety Report 6762490-9 (Version None)
Quarter: 2010Q2

REPORT INFORMATION
  Report Type: 
  Country: None (occurrence: None)
  Receive Date: 20100609
  Receipt Date: 20100603
  Transmission Date: 20101027
  Serious: Yes (Hospitalization)
  Sender: FDA-Public Use
  Company Number: TR-BAXTER-2010BH015143

PATIENT
  Age: 7 Month
  Sex: Male
  Weight: 8 kg

DRUGS (7)
  1. GAMMAGARD LIQUID [Suspect]
     Indication: COMBINED IMMUNODEFICIENCY
     Route: 065
     Dates: start: 20100603, end: 20100603
  2. GAMMAGARD LIQUID [Suspect]
     Indication: PRIMARY IMMUNODEFICIENCY SYNDROME
     Route: 065
     Dates: start: 20100603, end: 20100603
  3. BACTRIM [Concomitant]
  4. TRIFLUCAN [Concomitant]
  5. INH [Concomitant]
  6. RIFAM [Concomitant]
  7. CLARITHROMYCIN LACTOBIONATE [Concomitant]

REACTIONS (1)
  - URTICARIA [None]
